FAERS Safety Report 7585801-3 (Version None)
Quarter: 2011Q3

REPORT INFORMATION
  Report Type: 
  Country: None (occurrence: None)
  Receive Date: 20110701
  Receipt Date: 20110630
  Transmission Date: 20111222
  Serious: Yes (Other)
  Sender: FDA-Public Use
  Company Number: AT-BRISTOL-MYERS SQUIBB COMPANY-15772031

PATIENT
  Age: 34 Year
  Sex: Male

DRUGS (2)
  1. ABILIFY [Suspect]
     Indication: BIPOLAR I DISORDER
     Dosage: MONO-THERAPY FROM 5 OVER 10 TO IN TOTAL 20 MG WITHIN 3 WEEKS
     Route: 048
  2. ZOLPIDEM [Concomitant]
     Dosage: DECREASED TO 5MG

REACTIONS (1)
  - MANIA [None]
